FAERS Safety Report 7552657-4 (Version None)
Quarter: 2011Q2

REPORT INFORMATION
  Report Type: 
  Country: None (occurrence: None)
  Receive Date: 20110616
  Receipt Date: 20110605
  Transmission Date: 20111010
  Serious: Yes (Hospitalization)
  Sender: FDA-Public Use
  Company Number: KW-UCBSA-035301

PATIENT
  Sex: Male

DRUGS (7)
  1. OMEPRAZOLE [Concomitant]
  2. METFORMIN HCL [Concomitant]
  3. ZOCOR [Concomitant]
  4. KEPPRA [Suspect]
     Dosage: 300 ML FOR 2 DOSES
     Route: 048
     Dates: start: 20110319, end: 20110301
  5. KEPPRA [Suspect]
     Indication: EPILEPSY
     Route: 048
     Dates: start: 20070101
  6. LAMICTAL [Concomitant]
  7. WARFARIN SODIUM [Concomitant]

REACTIONS (1)
  - OVERDOSE [None]
